FAERS Safety Report 5504704-9 (Version None)
Quarter: 2007Q4

REPORT INFORMATION
  Report Type: 
  Country: None (occurrence: None)
  Receive Date: 20071031
  Receipt Date: 20071018
  Transmission Date: 20080405
  Serious: Yes (Hospitalization)
  Sender: FDA-Public Use
  Company Number: A-JP2007-17414

PATIENT
  Age: 74 Year
  Sex: Female
  Weight: 31 kg

DRUGS (8)
  1. TRACLEER [Suspect]
     Indication: PULMONARY HYPERTENSION
     Dosage: 15.625 MG, BID, ORAL, 15.625 MG, QD, ORAL, 31.25 MG, BID, ORAL, 46.875 MG, BID, ORAL
     Route: 048
     Dates: start: 20070515, end: 20070521
  2. TRACLEER [Suspect]
     Indication: PULMONARY HYPERTENSION
     Dosage: 15.625 MG, BID, ORAL, 15.625 MG, QD, ORAL, 31.25 MG, BID, ORAL, 46.875 MG, BID, ORAL
     Route: 048
     Dates: start: 20070522, end: 20070617
  3. TRACLEER [Suspect]
     Indication: PULMONARY HYPERTENSION
     Dosage: 15.625 MG, BID, ORAL, 15.625 MG, QD, ORAL, 31.25 MG, BID, ORAL, 46.875 MG, BID, ORAL
     Route: 048
     Dates: start: 20070618, end: 20070724
  4. TRACLEER [Suspect]
     Indication: PULMONARY HYPERTENSION
     Dosage: 15.625 MG, BID, ORAL, 15.625 MG, QD, ORAL, 31.25 MG, BID, ORAL, 46.875 MG, BID, ORAL
     Route: 048
     Dates: start: 20070725, end: 20070801
  5. BERAPROST SODIUM (BERAPROST SODIUM) [Concomitant]
  6. WARFARIN POTASSIUM (WARFARIN POTASSIUM) [Concomitant]
  7. OMEPRAZOLE [Concomitant]
  8. FUROSEMIDE [Concomitant]

REACTIONS (2)
  - ANAEMIA [None]
  - CARDIAC FAILURE [None]
